FAERS Safety Report 4490493-6 (Version None)
Quarter: 2004Q4

REPORT INFORMATION
  Report Type: 
  Country: None (occurrence: None)
  Receive Date: 20041027
  Receipt Date: 20041019
  Transmission Date: 20050328
  Serious: Yes (Death, Hospitalization, Other)
  Sender: FDA-Public Use
  Company Number: 2004-06-0865

PATIENT
  Age: 54 Year
  Sex: Male

DRUGS (4)
  1. PEG-INTRON [Suspect]
     Indication: RENAL CELL CARCINOMA STAGE UNSPECIFIED
     Dosage: 100 MCG/WEEK SUBCUTANEOU
     Route: 058
     Dates: start: 20040101
  2. BETAPRED [Concomitant]
  3. MORPHINE [Concomitant]
  4. DOLCONTIN [Concomitant]

REACTIONS (3)
  - BLISTER [None]
  - CEREBRAL HAEMORRHAGE [None]
  - PEMPHIGOID [None]
